FAERS Safety Report 23692682 (Version 1)
Quarter: 2024Q2

REPORT INFORMATION
  Report Type: Spontaneous
  Country: CN (occurrence: CN)
  Receive Date: 20240401
  Receipt Date: 20240401
  Transmission Date: 20240716
  Serious: Yes (Hospitalization)
  Sender: FDA-Public Use
  Company Number: CN-BAYER-2024A044844

PATIENT
  Age: 57 Year
  Sex: Male
  Weight: 66 kg

DRUGS (1)
  1. KERENDIA [Suspect]
     Active Substance: FINERENONE
     Indication: Diabetes mellitus
     Dosage: 10 MG, QD
     Route: 048

REACTIONS (5)
  - Renal impairment [Recovering/Resolving]
  - Tibia fracture [None]
  - Fibula fracture [None]
  - Skin laceration [None]
  - Off label use [None]

NARRATIVE: CASE EVENT DATE: 20240130
